FAERS Safety Report 18122131 (Version 1)
Quarter: 2020Q3

REPORT INFORMATION
  Report Type: Spontaneous
  Country: US (occurrence: US)
  Receive Date: 20200807
  Receipt Date: 20200807
  Transmission Date: 20201103
  Serious: No
  Sender: FDA-Public Use
  Company Number: US-GLENMARK PHARMACEUTICALS-2020GMK047977

PATIENT

DRUGS (1)
  1. DESOXIMETASONE. [Suspect]
     Active Substance: DESOXIMETASONE
     Indication: EXPOSURE TO TOXIC AGENT
     Dosage: UNK, BID; 3 WEEKS
     Route: 061
     Dates: start: 2020

REACTIONS (4)
  - Product package associated injury [Unknown]
  - Product container issue [Unknown]
  - Drug effective for unapproved indication [Unknown]
  - Product storage error [Unknown]

NARRATIVE: CASE EVENT DATE: 2020
